FAERS Safety Report 24332665 (Version 1)
Quarter: 2024Q3

REPORT INFORMATION
  Report Type: Spontaneous
  Country: UA (occurrence: UA)
  Receive Date: 20240918
  Receipt Date: 20240918
  Transmission Date: 20241016
  Serious: Yes (Death)
  Sender: MYLAN
  Company Number: UA-MYLANLABS-2024M1084775

PATIENT
  Age: 28 Year
  Sex: Male

DRUGS (4)
  1. PRETOMANID [Suspect]
     Active Substance: PRETOMANID
     Indication: Pulmonary tuberculosis
     Dosage: 200 MILLIGRAM, QD
     Route: 048
     Dates: start: 20240823, end: 20240824
  2. LINEZOLID [Suspect]
     Active Substance: LINEZOLID
     Indication: Pulmonary tuberculosis
     Dosage: 600 MILLIGRAM, QD
     Route: 048
     Dates: start: 20240823, end: 20240824
  3. MOXIFLOXACIN [Suspect]
     Active Substance: MOXIFLOXACIN
     Indication: Pulmonary tuberculosis
     Dosage: 400 MILLIGRAM, QD
     Route: 048
     Dates: start: 20240823, end: 20240824
  4. BEDAQUILINE [Suspect]
     Active Substance: BEDAQUILINE
     Indication: Pulmonary tuberculosis
     Dosage: 400 MILLIGRAM, QD
     Route: 048
     Dates: start: 20240823, end: 20240824

REACTIONS (1)
  - Death [Fatal]

NARRATIVE: CASE EVENT DATE: 20240824
